FAERS Safety Report 9549430 (Version 3)
Quarter: 2013Q4

REPORT INFORMATION
  Report Type: Spontaneous
  Country: CN (occurrence: CN)
  Receive Date: 20130924
  Receipt Date: 20131028
  Transmission Date: 20140711
  Serious: Yes (Death, Other)
  Sender: FDA-Public Use
  Company Number: CN-ABBVIE-13P-035-1144079-00

PATIENT
  Age: 13 Month
  Sex: Male

DRUGS (1)
  1. SEVOFRANE [Suspect]
     Indication: GENERAL ANAESTHESIA
     Route: 055
     Dates: start: 20130903, end: 20130903

REACTIONS (5)
  - Hyperthermia malignant [Fatal]
  - Obstructive airways disorder [Not Recovered/Not Resolved]
  - Cyanosis [Not Recovered/Not Resolved]
  - Chest pain [Not Recovered/Not Resolved]
  - Cardiac arrest [Not Recovered/Not Resolved]
